FAERS Safety Report 7214889-4 (Version None)
Quarter: 2011Q1

REPORT INFORMATION
  Report Type: 
  Country: None (occurrence: None)
  Receive Date: 20110107
  Receipt Date: 20100604
  Transmission Date: 20110831
  Serious: No
  Sender: FDA-Public Use
  Company Number: A0856486A

PATIENT
  Age: 40 Year
  Sex: Female

DRUGS (3)
  1. LOVAZA [Suspect]
     Dosage: 2G TWICE PER DAY
     Route: 048
     Dates: start: 20090401, end: 20100422
  2. SYNTHROID [Concomitant]
  3. CRESTOR [Concomitant]

REACTIONS (3)
  - RETCHING [None]
  - PRODUCT QUALITY ISSUE [None]
  - PRODUCT ODOUR ABNORMAL [None]
